FAERS Safety Report 5387719-3 (Version None)
Quarter: 2007Q3

REPORT INFORMATION
  Report Type: 
  Country: None (occurrence: None)
  Receive Date: 20070712
  Receipt Date: 20070712
  Transmission Date: 20080115
  Serious: Yes (Other)
  Sender: FDA-Public Use
  Company Number: None

PATIENT
  Sex: Female
  Weight: 74.8435 kg

DRUGS (1)
  1. PAXIL CR [Suspect]
     Indication: DEPRESSION
     Dosage: 1 TABLET 1 X DAY PO
     Route: 048
     Dates: start: 20020629, end: 20070702

REACTIONS (1)
  - DRUG WITHDRAWAL SYNDROME [None]
